FAERS Safety Report 5728570-1 (Version None)
Quarter: 2008Q2

REPORT INFORMATION
  Report Type: 
  Country: None (occurrence: None)
  Receive Date: 20080502
  Receipt Date: 20080502
  Transmission Date: 20081010
  Serious: Yes (Hospitalization)
  Sender: FDA-Public Use
  Company Number: None

PATIENT
  Sex: Female
  Weight: 56.2 kg

DRUGS (7)
  1. DAUNORUBICIN HCL [Suspect]
     Dosage: 160 MG
  2. DEXAMETHASONE TAB [Suspect]
     Dosage: 16 MG
  3. METHOTREXATE [Suspect]
     Dosage: 15 MG
  4. PEG-L-ASPARAGINASE (K-H) [Suspect]
     Dosage: 4050 UNIT
  5. PREDNISONE TAB [Suspect]
     Dosage: 1300 MG
  6. VINCRISTINE SULFATE [Suspect]
     Dosage: 8 MG
  7. CYTARABINE [Suspect]
     Dosage: 70 MG

REACTIONS (3)
  - ABDOMINAL PAIN [None]
  - GASTROINTESTINAL PERFORATION [None]
  - PNEUMOPERITONEUM [None]
